FAERS Safety Report 16101369 (Version 3)
Quarter: 2019Q2

REPORT INFORMATION
  Report Type: Spontaneous
  Country: FR (occurrence: FR)
  Receive Date: 20190321
  Receipt Date: 20190403
  Transmission Date: 20190711
  Serious: Yes (Other)
  Sender: FDA-Public Use
  Company Number: FR-PFIZER INC-2019117478

PATIENT
  Age: 65 Year
  Sex: Female

DRUGS (6)
  1. SERTRALINE [Suspect]
     Active Substance: SERTRALINE HYDROCHLORIDE
     Indication: DEPRESSION
     Dosage: 50 MG, 1X/DAY
  2. DIAZEPAM. [Concomitant]
     Active Substance: DIAZEPAM
     Indication: DEPRESSION
     Dosage: 2 MG, 1X/DAY
  3. MIANSERIN [Interacting]
     Active Substance: MIANSERIN
     Dosage: 30 MG, 1X/DAY
  4. MIANSERIN [Interacting]
     Active Substance: MIANSERIN
     Indication: DEPRESSION
     Dosage: 10 MG, 1X/DAY
  5. METHOTREXATE. [Concomitant]
     Active Substance: METHOTREXATE
     Indication: RHEUMATOID ARTHRITIS
     Dosage: 15 MG, 1X/DAY (TREATED WEEKLY WITH METHOTREXATE [15 MG ONCE DAILY (OD)]
  6. VITAMIN B [Concomitant]
     Active Substance: VITAMIN B
     Indication: SUPPLEMENTATION THERAPY
     Dosage: UNK

REACTIONS (2)
  - Drug-device interaction [Recovered/Resolved]
  - Frontotemporal dementia [Recovered/Resolved]
